FAERS Safety Report 4959772-X (Version None)
Quarter: 2006Q1

REPORT INFORMATION
  Report Type: 
  Country: None (occurrence: None)
  Receive Date: 20060331
  Receipt Date: 20060322
  Transmission Date: 20060701
  Serious: Yes (Hospitalization)
  Sender: FDA-Public Use
  Company Number: FR-BRISTOL-MYERS SQUIBB COMPANY-13322904

PATIENT
  Age: 61 Year
  Sex: Female

DRUGS (2)
  1. AMIKIN [Suspect]
     Route: 042
     Dates: start: 20050724, end: 20050724
  2. FORTUM [Suspect]
     Route: 042
     Dates: start: 20050724, end: 20050724

REACTIONS (1)
  - URTICARIA [None]
